FAERS Safety Report 14938698 (Version 3)
Quarter: 2018Q2

REPORT INFORMATION
  Report Type: Spontaneous
  Country: PT (occurrence: PT)
  Receive Date: 20180525
  Receipt Date: 20180601
  Transmission Date: 20180711
  Serious: Yes (Hospitalization, Disabling, Other)
  Sender: FDA-Public Use
  Company Number: PT-ASTELLAS-2018US024014

PATIENT
  Sex: Female

DRUGS (1)
  1. TARCEVA [Suspect]
     Active Substance: ERLOTINIB HYDROCHLORIDE
     Indication: NON-SMALL CELL LUNG CANCER
     Route: 048
     Dates: start: 201504, end: 20180518

REACTIONS (8)
  - Headache [Recovered/Resolved]
  - Dysphagia [Not Recovered/Not Resolved]
  - Hypoaesthesia oral [Recovered/Resolved]
  - Dysarthria [Not Recovered/Not Resolved]
  - Depression [Not Recovered/Not Resolved]
  - Paraesthesia [Recovered/Resolved]
  - Gait disturbance [Not Recovered/Not Resolved]
  - Diarrhoea [Not Recovered/Not Resolved]

NARRATIVE: CASE EVENT DATE: 20180206
